FAERS Safety Report 10207050 (Version 3)
Quarter: 2014Q3

REPORT INFORMATION
  Report Type: Spontaneous
  Country: US (occurrence: US)
  Receive Date: 20140530
  Receipt Date: 20140707
  Transmission Date: 20150326
  Serious: Yes (Other)
  Sender: FDA-Public Use
  Company Number: US-PFIZER INC-2014145661

PATIENT
  Age: 65 Year
  Sex: Female
  Weight: 61.22 kg

DRUGS (10)
  1. ZOFRAN [Concomitant]
     Active Substance: ONDANSETRON HYDROCHLORIDE
     Indication: NAUSEA
     Dosage: UNK
  2. INLYTA [Suspect]
     Active Substance: AXITINIB
     Indication: RENAL CANCER METASTATIC
     Dosage: 1 MG, UNK
     Route: 048
  3. INLYTA [Suspect]
     Active Substance: AXITINIB
     Dosage: 8 MG, UNK
     Route: 048
  4. LOMOTIL [Concomitant]
     Active Substance: ATROPINE SULFATE\DIPHENOXYLATE HYDROCHLORIDE
     Indication: DIARRHOEA
     Dosage: UNK
  5. ZESTRIL [Suspect]
     Active Substance: LISINOPRIL
     Indication: HYPERTENSION
     Dosage: UNK
  6. INLYTA [Suspect]
     Active Substance: AXITINIB
     Dosage: 6 MG, UNK
     Route: 048
  7. LABETALOL [Suspect]
     Active Substance: LABETALOL\LABETALOL HYDROCHLORIDE
     Indication: HYPERTENSION
     Dosage: UNK
  8. XANAX [Concomitant]
     Active Substance: ALPRAZOLAM
     Dosage: UNK, AS NEEDED
  9. VICODIN [Concomitant]
     Active Substance: ACETAMINOPHEN\HYDROCODONE BITARTRATE
     Indication: PAIN
     Dosage: UNK (HALF A TABLET )
  10. INLYTA [Suspect]
     Active Substance: AXITINIB
     Dosage: 10 MG, UNK
     Route: 048
     Dates: start: 2014

REACTIONS (7)
  - Posterior reversible encephalopathy syndrome [Unknown]
  - Amnesia [Unknown]
  - Lung disorder [Unknown]
  - Cognitive disorder [Unknown]
  - Drug intolerance [Unknown]
  - Hypertension [Unknown]
  - Depression [Unknown]

NARRATIVE: CASE EVENT DATE: 2013
